FAERS Safety Report 6416748-3 (Version None)
Quarter: 2009Q4

REPORT INFORMATION
  Report Type: 
  Country: None (occurrence: None)
  Receive Date: 20091022
  Receipt Date: 20091008
  Transmission Date: 20100525
  Serious: Yes (Other)
  Sender: FDA-Public Use
  Company Number: 2009-4185

PATIENT
  Age: 36 Year
  Sex: Female
  Weight: 58.9 kg

DRUGS (1)
  1. DYSPORT [Suspect]
     Indication: SKIN WRINKLING
     Dosage: (62.5 UNITS, SINGLE CYCLE), INTRAMUSCULAR
     Route: 030
     Dates: start: 20091005, end: 20091006

REACTIONS (8)
  - BOTULISM [None]
  - DIPLOPIA [None]
  - DIZZINESS [None]
  - DYSPHAGIA [None]
  - DYSPHONIA [None]
  - HEADACHE [None]
  - ROAD TRAFFIC ACCIDENT [None]
  - VISION BLURRED [None]
